FAERS Safety Report 4640768-2 (Version None)
Quarter: 2005Q2

REPORT INFORMATION
  Report Type: 
  Country: None (occurrence: None)
  Receive Date: 20050324
  Receipt Date: 20041129
  Transmission Date: 20051028
  Serious: No
  Sender: FDA-Public Use
  Company Number: 210772

PATIENT

DRUGS (1)
  1. AVASTIN [Suspect]

REACTIONS (1)
  - RHEUMATOID ARTHRITIS [None]
